FAERS Safety Report 9348752 (Version 1)
Quarter: 2013Q2

REPORT INFORMATION
  Report Type: Spontaneous
  Country: BR (occurrence: BR)
  Receive Date: 20130614
  Receipt Date: 20130614
  Transmission Date: 20140414
  Serious: Yes (Other)
  Sender: FDA-Public Use
  Company Number: BR-ABBOTT-13X-020-1101287-00

PATIENT
  Sex: Female

DRUGS (4)
  1. DEPAKENE [Suspect]
     Indication: DEMENTIA ALZHEIMER^S TYPE
     Route: 048
     Dates: start: 2011, end: 2012
  2. DEPAKENE [Suspect]
     Indication: PRODUCT USED FOR UNKNOWN INDICATION
     Dates: start: 201305
  3. HALDOL [Concomitant]
     Indication: ANXIETY
     Route: 048
     Dates: start: 2010
  4. DEPRAMINA [Concomitant]
     Indication: AGITATION
     Route: 048
     Dates: start: 2010

REACTIONS (13)
  - Delirium [Recovered/Resolved]
  - Unevaluable event [Recovering/Resolving]
  - Tremor [Recovering/Resolving]
  - Soliloquy [Unknown]
  - Somnolence [Not Recovered/Not Resolved]
  - Muscular weakness [Not Recovered/Not Resolved]
  - Anxiety [Not Recovered/Not Resolved]
  - Unevaluable event [Not Recovered/Not Resolved]
  - Amnesia [Not Recovered/Not Resolved]
  - Gait disturbance [Not Recovered/Not Resolved]
  - Fall [Unknown]
  - Unevaluable event [Unknown]
  - Off label use [Unknown]
